FAERS Safety Report 22239377 (Version 5)
Quarter: 2023Q2

REPORT INFORMATION
  Report Type: Report from Study
  Country: DE (occurrence: DE)
  Receive Date: 20230421
  Receipt Date: 20230620
  Transmission Date: 20230721
  Serious: Yes (Hospitalization)
  Sender: FDA-Public Use
  Company Number: DE-INSMED, INC.-2023-00901-DE

PATIENT
  Age: 56 Year
  Sex: Female

DRUGS (2)
  1. ARIKAYCE [Suspect]
     Active Substance: AMIKACIN
     Indication: Atypical mycobacterial infection
     Dosage: 295 MILLIGRAM, QD
     Route: 055
     Dates: start: 20211103, end: 202304
  2. ARIKAYCE [Suspect]
     Active Substance: AMIKACIN
     Dosage: 295 MILLIGRAM, QD
     Route: 055
     Dates: start: 20230429

REACTIONS (12)
  - Hospitalisation [Unknown]
  - Sleep disorder [Recovered/Resolved]
  - Fall [Recovered/Resolved]
  - Limb injury [Recovering/Resolving]
  - Cardiovascular disorder [Recovered/Resolved]
  - Cardiovascular disorder [Recovering/Resolving]
  - Hyperhidrosis [Recovered/Resolved]
  - Abdominal pain upper [Recovered/Resolved]
  - Rash [Recovered/Resolved]
  - Fatigue [Recovered/Resolved]
  - Asthenia [Unknown]
  - Product dose omission issue [Unknown]

NARRATIVE: CASE EVENT DATE: 20230101
